FAERS Safety Report 4890835-3 (Version None)
Quarter: 2006Q1

REPORT INFORMATION
  Report Type: 
  Country: None (occurrence: None)
  Receive Date: 20060125
  Receipt Date: 20060117
  Transmission Date: 20060701
  Serious: Yes (Death)
  Sender: FDA-Public Use
  Company Number: FR-BRISTOL-MYERS SQUIBB COMPANY-13256003

PATIENT
  Age: 47 Year
  Sex: Female

DRUGS (5)
  1. DIDANOSINE [Suspect]
  2. EFAVIRENZ [Suspect]
  3. LAMIVUDINE [Suspect]
  4. PEGINTERFERON ALFA-2B [Suspect]
     Indication: HEPATITIS C
  5. RIBAVIRIN [Suspect]
     Indication: HEPATITIS C

REACTIONS (1)
  - HEPATIC FAILURE [None]
